FAERS Safety Report 9101325 (Version 2)
Quarter: 2013Q1

REPORT INFORMATION
  Report Type: Spontaneous
  Country: DE (occurrence: DE)
  Receive Date: 20130218
  Receipt Date: 20130225
  Transmission Date: 20140127
  Serious: Yes (Death, Other)
  Sender: FDA-Public Use
  Company Number: DE-ASTRAZENECA-2013SE10219

PATIENT
  Age: 57 Year
  Sex: Male

DRUGS (12)
  1. NAROPIN [Suspect]
     Indication: ANALGESIC THERAPY
     Dosage: 2-7.5 MG/ML 20-30 ML
     Route: 053
  2. NAROPIN [Suspect]
     Indication: ANALGESIC THERAPY
     Dosage: 2 MG/ML 30 ML EVERY 6-8 HOURS
     Route: 053
  3. PROPOFOL [Concomitant]
     Indication: GENERAL ANAESTHESIA
     Route: 042
  4. REMIFENTANIL [Concomitant]
     Indication: GENERAL ANAESTHESIA
     Route: 042
  5. ROCURONIUM [Concomitant]
     Indication: GENERAL ANAESTHESIA
  6. TRAMADOL [Concomitant]
     Dosage: 400 MG
  7. METAMIZOLE [Concomitant]
     Dosage: 2.5 MG
  8. METOCLOPRAMIDE [Concomitant]
     Dosage: 10 MG
  9. DIPIDOLOR [Concomitant]
     Indication: ANALGESIC THERAPY
     Dosage: 3:25 PM
     Route: 042
  10. DIPIDOLOR [Concomitant]
     Indication: ANALGESIC THERAPY
     Dosage: 4:15 PM
  11. DIPIDOLOR [Concomitant]
     Indication: ANALGESIC THERAPY
     Dosage: 9:00 PM
  12. DIPIDOLOR [Concomitant]
     Indication: ANALGESIC THERAPY
     Dosage: 9:30 PM

REACTIONS (4)
  - Incorrect route of drug administration [Fatal]
  - Toxicity to various agents [Fatal]
  - Cardio-respiratory arrest [Fatal]
  - Convulsion [Unknown]
